FAERS Safety Report 14226891 (Version 2)
Quarter: 2017Q4

REPORT INFORMATION
  Report Type: Report from Study
  Country: None (occurrence: DE)
  Receive Date: 20171127
  Receipt Date: 20171129
  Transmission Date: 20180321
  Serious: Yes (Hospitalization)
  Sender: FDA-Public Use
  Company Number: DE-ABBVIE-17K-062-2175032-00

PATIENT
  Sex: Female

DRUGS (1)
  1. DUODOPA [Suspect]
     Active Substance: CARBIDOPA\LEVODOPA
     Indication: PARKINSON^S DISEASE
     Route: 050
     Dates: start: 20170710, end: 2017

REACTIONS (3)
  - Wound infection [Unknown]
  - Stoma site inflammation [Not Recovered/Not Resolved]
  - Stoma site infection [Unknown]

NARRATIVE: CASE EVENT DATE: 2017
